FAERS Safety Report 15634040 (Version 8)
Quarter: 2021Q2

REPORT INFORMATION
  Report Type: Spontaneous
  Country: US (occurrence: US)
  Receive Date: 20181119
  Receipt Date: 20210512
  Transmission Date: 20210716
  Serious: Yes (Hospitalization, Disabling, Other)
  Sender: FDA-Public Use
  Company Number: US-PFIZER INC-2018471036

PATIENT
  Age: 61 Year
  Sex: Female
  Weight: 91 kg

DRUGS (4)
  1. XELJANZ [Suspect]
     Active Substance: TOFACITINIB CITRATE
     Dosage: 5 MG
     Route: 048
  2. XELJANZ [Suspect]
     Active Substance: TOFACITINIB CITRATE
     Dosage: 10 MG
  3. XELJANZ [Suspect]
     Active Substance: TOFACITINIB CITRATE
     Indication: RHEUMATOID ARTHRITIS
     Dosage: 5 MG, 2X/DAY
     Route: 048
     Dates: start: 20151226
  4. XELJANZ [Suspect]
     Active Substance: TOFACITINIB CITRATE
     Dosage: 5 MG, 2X/DAY, (2 TABLETS TAKEN BY MOUTH DAILY: 1 IN THE MORNING AND 1 AT NIGHT)
     Route: 048
     Dates: start: 201706, end: 20190521

REACTIONS (11)
  - Rib fracture [Recovering/Resolving]
  - Headache [Unknown]
  - Intentional product use issue [Unknown]
  - Limb injury [Unknown]
  - Pulmonary contusion [Unknown]
  - Condition aggravated [Unknown]
  - Upper limb fracture [Unknown]
  - Radial nerve palsy [Recovering/Resolving]
  - Accident [Not Recovered/Not Resolved]
  - Malaise [Unknown]
  - Gait disturbance [Unknown]

NARRATIVE: CASE EVENT DATE: 20180620
